FAERS Safety Report 6237554-9 (Version None)
Quarter: 2009Q2

REPORT INFORMATION
  Report Type: 
  Country: None (occurrence: None)
  Receive Date: 20090617
  Receipt Date: 20090604
  Transmission Date: 20091009
  Serious: Yes (Other)
  Sender: FDA-Public Use
  Company Number: 235495K09USA

PATIENT
  Age: 60 Year
  Sex: Female
  Weight: 79 kg

DRUGS (7)
  1. REBIF [Suspect]
     Indication: MULTIPLE SCLEROSIS
     Dosage: 22 MCG, 3 IN 1 WEEKS, SUBCUTANEOUS
     Route: 058
     Dates: start: 20050525
  2. STEROIDS (CORTICOSTEROID NOS) [Concomitant]
  3. HYDROCHLOROTHIAZIDE [Concomitant]
  4. NEXIUM [Concomitant]
  5. PROZAC [Concomitant]
  6. SIMVASTATIN (SIMVASTATIN) [Concomitant]
  7. VITAMIN D [Concomitant]

REACTIONS (15)
  - BACK PAIN [None]
  - CHROMATURIA [None]
  - CONDITION AGGRAVATED [None]
  - DIARRHOEA [None]
  - DYSPNOEA [None]
  - FEELING ABNORMAL [None]
  - HYPOKALAEMIA [None]
  - LOSS OF CONSCIOUSNESS [None]
  - MULTIPLE SCLEROSIS [None]
  - MUSCLE RIGIDITY [None]
  - MUSCULOSKELETAL STIFFNESS [None]
  - PAIN [None]
  - PROCTALGIA [None]
  - SOMNOLENCE [None]
  - VOMITING [None]
